FAERS Safety Report 5384969-7 (Version None)
Quarter: 2007Q3

REPORT INFORMATION
  Report Type: 
  Country: None (occurrence: None)
  Receive Date: 20070709
  Receipt Date: 20070706
  Transmission Date: 20080115
  Serious: No
  Sender: FDA-Public Use
  Company Number: 07-197

PATIENT
  Age: 25 Year
  Sex: Male

DRUGS (5)
  1. VALPROIC ACID [Suspect]
     Indication: CEREBRAL SARCOIDOSIS
     Dosage: 250 MG/D
  2. PREDNISONE [Concomitant]
  3. AZATHIOPRINE [Concomitant]
  4. QUETIAPINE FUMARATE [Concomitant]
  5. ESOMEPRAZOLE MAGNESIUM [Concomitant]

REACTIONS (2)
  - EOSINOPHILIA [None]
  - PLEURAL EFFUSION [None]
